FAERS Safety Report 6414867-9 (Version None)
Quarter: 2009Q4

REPORT INFORMATION
  Report Type: 
  Country: None (occurrence: None)
  Receive Date: 20091026
  Receipt Date: 20081219
  Transmission Date: 20100525
  Serious: No
  Sender: FDA-Public Use
  Company Number: US-ABBOTT-08P-163-0493986-00

PATIENT
  Sex: Female
  Weight: 56.75 kg

DRUGS (1)
  1. LUPRON DEPOT [Suspect]
     Indication: ENDOMETRIOSIS
     Route: 030
     Dates: start: 20080901, end: 20081101

REACTIONS (4)
  - FLUID RETENTION [None]
  - HOT FLUSH [None]
  - NIGHT SWEATS [None]
  - WEIGHT INCREASED [None]
